FAERS Safety Report 7961736-9 (Version None)
Quarter: 2011Q4

REPORT INFORMATION
  Report Type: 
  Country: None (occurrence: None)
  Receive Date: 20111202
  Receipt Date: 20111202
  Transmission Date: 20120403
  Serious: No
  Sender: FDA-Public Use
  Company Number: None

PATIENT
  Age: 59 Year
  Sex: Male
  Weight: 97.5234 kg

DRUGS (2)
  1. LISINOPRIL [Suspect]
     Indication: HYPERTENSION
     Dosage: 20 MG 2X DAY PILL
     Dates: start: 20110915
  2. LISINOPRIL [Suspect]
     Indication: HYPERTENSION
     Dosage: 20 MG 2X DAY PILL
     Dates: start: 20111015

REACTIONS (3)
  - ASTHENIA [None]
  - ARTHRITIS [None]
  - CHEST PAIN [None]
